FAERS Safety Report 6491561-X (Version None)
Quarter: 2009Q4

REPORT INFORMATION
  Report Type: 
  Country: None (occurrence: None)
  Receive Date: 20091211
  Receipt Date: 20091202
  Transmission Date: 20100525
  Serious: Yes (Other)
  Sender: FDA-Public Use
  Company Number: US-RB-026272-09

PATIENT
  Age: 25 Year
  Sex: Male

DRUGS (4)
  1. SUBOXONE [Suspect]
     Route: 060
     Dates: start: 20091001
  2. MIRTAZAPINE [Suspect]
     Indication: DEPRESSION
     Route: 065
     Dates: start: 20091101, end: 20091126
  3. STRATTERA [Suspect]
     Dosage: TOOK 40 MG, EXACT DOSING UNKNOWN
     Route: 065
     Dates: start: 20091101, end: 20091125
  4. STRATTERA [Suspect]
     Dosage: TOOK 100 MG, EXACT DOSING UNKNOWN
     Route: 065
     Dates: start: 20091126, end: 20091126

REACTIONS (1)
  - CONVULSION [None]
